FAERS Safety Report 5194855-3 (Version None)
Quarter: 2006Q4

REPORT INFORMATION
  Report Type: 
  Country: None (occurrence: None)
  Receive Date: 20061227
  Receipt Date: 20061215
  Transmission Date: 20070319
  Serious: Yes (Hospitalization)
  Sender: FDA-Public Use
  Company Number: TRP_0895_2006

PATIENT
  Age: 35 Year
  Sex: Female

DRUGS (7)
  1. RIBASPHERE [Suspect]
     Indication: HEPATITIS C
     Dosage: DF PO
     Route: 048
     Dates: start: 20051013, end: 20060924
  2. PEG-INTRON [Suspect]
     Indication: HEPATITIS C
     Dosage: DF SC
     Route: 058
     Dates: start: 20051013, end: 20060924
  3. DEPO-PROVERA [Concomitant]
  4. TRAZODONE HCL [Concomitant]
  5. CLONIDINE [Concomitant]
  6. SEROQUEL [Concomitant]
  7. TRILEPTAL [Concomitant]

REACTIONS (13)
  - ALCOHOL USE [None]
  - CHILLS [None]
  - DEPRESSION [None]
  - DISTURBANCE IN ATTENTION [None]
  - DRUG ABUSER [None]
  - EATING DISORDER [None]
  - FATIGUE [None]
  - HYPERSOMNIA [None]
  - HYPOTHYROIDISM [None]
  - NAUSEA [None]
  - RED BLOOD CELL COUNT DECREASED [None]
  - SLEEP DISORDER [None]
  - TREMOR [None]
